FAERS Safety Report 7074526-9 (Version None)
Quarter: 2010Q4

REPORT INFORMATION
  Report Type: 
  Country: None (occurrence: None)
  Receive Date: 20101029
  Receipt Date: 20101020
  Transmission Date: 20110411
  Serious: Yes (Other)
  Sender: FDA-Public Use
  Company Number: JP-PFIZER INC-2010126936

PATIENT
  Sex: Female

DRUGS (4)
  1. LIPITOR [Suspect]
     Dosage: UNK
     Route: 050
  2. LIPITOR [Suspect]
     Dosage: UNK
     Route: 065
  3. LAMISIL [Concomitant]
     Dosage: UNK
     Route: 048
  4. DETRUSITOL [Concomitant]
     Dosage: UNK
     Route: 048

REACTIONS (2)
  - ABORTION [None]
  - DRUG EXPOSURE DURING PREGNANCY [None]
